FAERS Safety Report 9197288 (Version 2)
Quarter: 2013Q2

REPORT INFORMATION
  Report Type: Report from Study
  Country: JP (occurrence: JP)
  Receive Date: 20130328
  Receipt Date: 20130501
  Transmission Date: 20140414
  Serious: Yes (Other)
  Sender: FDA-Public Use
  Company Number: JP-ROCHE-1207540

PATIENT
  Sex: Male

DRUGS (7)
  1. RANIBIZUMAB [Suspect]
     Indication: AGE-RELATED MACULAR DEGENERATION
     Route: 050
     Dates: start: 20090414
  2. RANIBIZUMAB [Suspect]
     Route: 050
     Dates: start: 20090514
  3. RANIBIZUMAB [Suspect]
     Route: 050
     Dates: start: 20090611, end: 20090611
  4. BEVACIZUMAB [Suspect]
     Indication: AGE-RELATED MACULAR DEGENERATION
     Route: 065
  5. MOXIFLOXACIN HYDROCHLORIDE [Concomitant]
     Route: 065
     Dates: start: 200904, end: 200906
  6. FLOMOX [Concomitant]
     Route: 065
     Dates: start: 20090414, end: 20090612
  7. PNEUMOCOCCAL VACCINE [Concomitant]

REACTIONS (2)
  - Retinal haemorrhage [Unknown]
  - Visual acuity reduced [Unknown]
